FAERS Safety Report 19106530 (Version 1)
Quarter: 2021Q2

REPORT INFORMATION
  Report Type: Spontaneous
  Country: CN (occurrence: CN)
  Receive Date: 20210407
  Receipt Date: 20210407
  Transmission Date: 20210717
  Serious: Yes (Other)
  Sender: FDA-Public Use
  Company Number: CN-BAXTER-2021BAX006709

PATIENT
  Age: 57 Year
  Sex: Male
  Weight: 70 kg

DRUGS (4)
  1. 5% GLUCOSE  INJECTION [Suspect]
     Active Substance: DEXTROSE
     Indication: SUPPORTIVE CARE
     Route: 041
     Dates: start: 20210311, end: 20210311
  2. MULTIVITAMIN FOR INJECTION(12) [Suspect]
     Active Substance: VITAMINS
     Indication: SUPPORTIVE CARE
     Route: 041
     Dates: start: 20210311, end: 20210311
  3. 5% GLUCOSE  INJECTION [Suspect]
     Active Substance: DEXTROSE
     Dosage: DOSE?REINTRODUCED
     Route: 041
     Dates: start: 20210311
  4. MULTIVITAMIN FOR INJECTION(12) [Suspect]
     Active Substance: VITAMINS
     Dosage: DOSE REINTRODUCED
     Route: 041
     Dates: start: 20210311

REACTIONS (2)
  - Feeling cold [Recovered/Resolved]
  - Chills [Recovered/Resolved]

NARRATIVE: CASE EVENT DATE: 20210311
